FAERS Safety Report 6304801-4 (Version None)
Quarter: 2009Q3

REPORT INFORMATION
  Report Type: 
  Country: None (occurrence: None)
  Receive Date: 20090811
  Receipt Date: 20090805
  Transmission Date: 20100115
  Serious: Yes (Hospitalization, Other)
  Sender: FDA-Public Use
  Company Number: US-ABBOTT-09P-163-0584908-00

PATIENT
  Sex: Female
  Weight: 64.014 kg

DRUGS (25)
  1. HUMIRA [Suspect]
     Indication: ARTHRITIS
     Dates: start: 20030602, end: 20031110
  2. HUMIRA [Suspect]
     Dates: start: 20031110, end: 20050901
  3. HUMIRA [Suspect]
     Route: 058
     Dates: start: 20030103, end: 20061227
  4. HUMIRA [Suspect]
     Route: 058
     Dates: start: 20060103, end: 20061025
  5. NIACIN [Concomitant]
     Indication: DRUG USE FOR UNKNOWN INDICATION
  6. MG [Concomitant]
     Indication: DRUG USE FOR UNKNOWN INDICATION
  7. CLARINEX [Concomitant]
     Indication: DRUG USE FOR UNKNOWN INDICATION
  8. ASPIRIN [Concomitant]
     Indication: DRUG USE FOR UNKNOWN INDICATION
  9. AZULFIDINE EN 500 MG [Concomitant]
     Indication: DRUG USE FOR UNKNOWN INDICATION
     Route: 048
  10. AZULFIDINE EN 500 MG [Concomitant]
     Route: 048
  11. FOLIC ACID [Concomitant]
     Indication: DRUG USE FOR UNKNOWN INDICATION
     Route: 048
  12. NIASPAN [Concomitant]
     Indication: DRUG USE FOR UNKNOWN INDICATION
     Route: 048
  13. TOPAMAX [Concomitant]
     Indication: DRUG USE FOR UNKNOWN INDICATION
     Route: 048
  14. NEXIUM [Concomitant]
     Indication: DRUG USE FOR UNKNOWN INDICATION
     Route: 048
  15. METHOTREXATE [Concomitant]
     Indication: DRUG USE FOR UNKNOWN INDICATION
     Dates: end: 20000201
  16. METHOTREXATE [Concomitant]
     Dates: start: 20001201
  17. PREDNISONE [Concomitant]
     Indication: DRUG USE FOR UNKNOWN INDICATION
     Dates: start: 19990701
  18. PREDNISONE [Concomitant]
     Dates: start: 20001201
  19. PREDNISONE [Concomitant]
  20. CALCIUM [Concomitant]
     Indication: DRUG USE FOR UNKNOWN INDICATION
  21. METHOTREXATE [Concomitant]
  22. ZELNORM [Concomitant]
     Indication: DRUG USE FOR UNKNOWN INDICATION
  23. ALLEGRA [Concomitant]
     Indication: DRUG USE FOR UNKNOWN INDICATION
  24. FLONASE [Concomitant]
     Indication: DRUG USE FOR UNKNOWN INDICATION
  25. TOPAMAX [Concomitant]

REACTIONS (33)
  - ABDOMINAL PAIN LOWER [None]
  - ANKLE OPERATION [None]
  - AREFLEXIA [None]
  - ARTHROPATHY [None]
  - BREAST CYST [None]
  - BREAST PAIN [None]
  - BURSITIS [None]
  - CYST [None]
  - DEAFNESS [None]
  - DIARRHOEA [None]
  - DIZZINESS [None]
  - DYSPAREUNIA [None]
  - FALL [None]
  - FATIGUE [None]
  - GAIT DISTURBANCE [None]
  - GENITAL RASH [None]
  - HYPOAESTHESIA [None]
  - JOINT INSTABILITY [None]
  - MECHANICAL URTICARIA [None]
  - MENISCUS LESION [None]
  - MENOPAUSE [None]
  - MONONEUROPATHY [None]
  - MORTON'S NEUROMA [None]
  - MUSCLE ATROPHY [None]
  - MUSCULAR WEAKNESS [None]
  - OVARIAN CYST [None]
  - PELVIC PAIN [None]
  - PEPTIC ULCER [None]
  - PNEUMONIA [None]
  - ROAD TRAFFIC ACCIDENT [None]
  - SHOULDER OPERATION [None]
  - SPONDYLOARTHROPATHY [None]
  - VOMITING [None]
